FAERS Safety Report 10231291 (Version 1)
Quarter: 2014Q2

REPORT INFORMATION
  Report Type: Report from Study
  Country: BR (occurrence: BR)
  Receive Date: 20140611
  Receipt Date: 20140611
  Transmission Date: 20141212
  Serious: Yes (Other)
  Sender: FDA-Public Use
  Company Number: PHHY2014BR071883

PATIENT
  Sex: Male
  Weight: 52 kg

DRUGS (3)
  1. EXFORGE HCT [Suspect]
     Indication: HYPERTENSION
     Dosage: 1 TABLET (160/5/12.5 MG) DAILY (IN THE MORNING)
     Route: 048
     Dates: start: 20140515
  2. ATENSINA [Suspect]
     Indication: HYPERTENSION
     Dosage: 1 TABLET (100 MG) DAILY (1 DF IN THE MORNING AND 1 DF AT NIGHT)
     Route: 048
     Dates: start: 20140528
  3. ANTICOAGULANTS [Concomitant]
     Indication: PREOPERATIVE CARE
     Dosage: UNK UKN, UNK

REACTIONS (6)
  - Renal injury [Recovering/Resolving]
  - Infarction [Recovering/Resolving]
  - Vein disorder [Recovering/Resolving]
  - Pain in extremity [Recovering/Resolving]
  - Weight fluctuation [Recovering/Resolving]
  - Malaise [Recovering/Resolving]
